FAERS Safety Report 26113439 (Version 1)
Quarter: 2025Q4

REPORT INFORMATION
  Report Type: Spontaneous
  Country: EU (occurrence: EU)
  Receive Date: 20251202
  Receipt Date: 20251202
  Transmission Date: 20260117
  Serious: Yes (Other)
  Sender: ABBVIE
  Company Number: None

PATIENT
  Age: 78 Year
  Sex: Female
  Weight: 51 kg

DRUGS (6)
  1. ADALIMUMAB [Suspect]
     Active Substance: ADALIMUMAB
     Indication: Crohn^s disease
     Dosage: ((MAMMIFERE/HAMSTER/CHO))
     Route: 058
     Dates: start: 20240704, end: 202409
  2. ADALIMUMAB [Suspect]
     Active Substance: ADALIMUMAB
     Dosage: ((MAMMIFERE/HAMSTER/CHO))
     Route: 058
     Dates: start: 202410, end: 202501
  3. ADALIMUMAB [Suspect]
     Active Substance: ADALIMUMAB
     Dosage: ((MAMMIFERE/HAMSTER/CHO))
     Route: 058
     Dates: start: 202501, end: 20250318
  4. INFLIXIMAB [Suspect]
     Active Substance: INFLIXIMAB
     Indication: Crohn^s disease
     Route: 058
     Dates: start: 20220329
  5. INFLIXIMAB [Suspect]
     Active Substance: INFLIXIMAB
     Indication: Crohn^s disease
     Dosage: ((MAMMIFERE/HAMSTER/CELLULES CHO))
     Route: 042
     Dates: start: 20221004, end: 20240123
  6. INFLIXIMAB [Suspect]
     Active Substance: INFLIXIMAB
     Indication: Crohn^s disease
     Route: 042
     Dates: start: 20180215, end: 20220201

REACTIONS (3)
  - Restless legs syndrome [Recovered/Resolved]
  - Rosacea [Recovering/Resolving]
  - Ocular rosacea [Recovering/Resolving]
